FAERS Safety Report 5494528-3 (Version None)
Quarter: 2007Q4

REPORT INFORMATION
  Report Type: 
  Country: None (occurrence: None)
  Receive Date: 20071022
  Receipt Date: 20071004
  Transmission Date: 20080405
  Serious: Yes (Other)
  Sender: FDA-Public Use
  Company Number: 8027252

PATIENT
  Sex: Female

DRUGS (6)
  1. KEPPRA [Suspect]
     Indication: NEUROPATHY
     Dosage: 1500 MG 1/D PO
     Route: 048
     Dates: start: 20051001, end: 20050101
  2. KEPPRA [Suspect]
     Indication: NEUROPATHY
     Dosage: 1000 MG PO
     Route: 048
     Dates: start: 20050101, end: 20060101
  3. KEPPRA [Suspect]
     Indication: NEUROPATHY
     Dosage: 225 MG 2/D PO
     Route: 048
     Dates: start: 20060101
  4. LIDODERM [Concomitant]
  5. SYNTHROID [Concomitant]
  6. FOLIC ACID [Concomitant]

REACTIONS (3)
  - CHOKING SENSATION [None]
  - PHARYNGOLARYNGEAL PAIN [None]
  - VOCAL CORD PARALYSIS [None]
